FAERS Safety Report 5695544-9 (Version None)
Quarter: 2008Q2

REPORT INFORMATION
  Report Type: 
  Country: None (occurrence: None)
  Receive Date: 20080407
  Receipt Date: 20080401
  Transmission Date: 20081010
  Serious: Yes (Death)
  Sender: FDA-Public Use
  Company Number: JP-BRISTOL-MYERS SQUIBB COMPANY-14135263

PATIENT
  Age: 69 Year
  Sex: Male

DRUGS (6)
  1. TAXOL [Suspect]
     Indication: LUNG NEOPLASM MALIGNANT
     Dosage: FIRST CYCLE-22-DEC-2005
     Route: 041
     Dates: start: 20060105, end: 20060105
  2. PARAPLATIN [Suspect]
     Indication: LUNG NEOPLASM MALIGNANT
     Route: 041
     Dates: start: 20051222, end: 20051222
  3. DECADRON [Concomitant]
     Route: 042
     Dates: start: 20060105, end: 20060105
  4. CHLOR-TRIMETON [Concomitant]
     Route: 042
     Dates: start: 20060105, end: 20060105
  5. ZANTAC [Concomitant]
     Route: 042
     Dates: start: 20060105, end: 20060105
  6. NASEA [Concomitant]
     Route: 041
     Dates: start: 20060105, end: 20060105

REACTIONS (1)
  - PNEUMONITIS [None]
